FAERS Safety Report 9797146 (Version 1)
Quarter: 2014Q1

REPORT INFORMATION
  Report Type: Spontaneous
  Country: FR (occurrence: FR)
  Receive Date: 20140106
  Receipt Date: 20140106
  Transmission Date: 20141002
  Serious: Yes (Hospitalization)
  Sender: FDA-Public Use
  Company Number: PHHY2013FR154405

PATIENT
  Age: 81 Year
  Sex: Female

DRUGS (9)
  1. TAREG [Suspect]
     Dosage: 80 MG, BID
     Route: 048
     Dates: end: 20131124
  2. LASILIX [Suspect]
     Indication: HYPERTENSION
     Dosage: 1.5 DF (40 MG), QD
     Route: 048
     Dates: start: 2012, end: 20131124
  3. GLUCOPHAGE [Concomitant]
     Dosage: UNK UKN, UNK
     Dates: start: 2004, end: 20131124
  4. KREDEX [Concomitant]
     Dosage: 25 MG, BID
  5. TAHOR [Concomitant]
     Dosage: 10 MG, QD
  6. AMLOR [Concomitant]
     Dosage: 5 MG, QD
  7. INEXIUM//ESOMEPRAZOLE MAGNESIUM [Concomitant]
     Dosage: 20 MG, QD
  8. IMOVANE [Concomitant]
     Dosage: 7.5 MG, QD
  9. TARDYFERON [Concomitant]
     Dosage: 80 MG, BID
     Dates: start: 20131015

REACTIONS (2)
  - Condition aggravated [Recovered/Resolved]
  - Renal failure acute [Recovered/Resolved]
